FAERS Safety Report 4708871-6 (Version None)
Quarter: 2005Q3

REPORT INFORMATION
  Report Type: 
  Country: None (occurrence: None)
  Receive Date: 20050705
  Receipt Date: 20050624
  Transmission Date: 20060218
  Serious: Yes (Other)
  Sender: FDA-Public Use
  Company Number: 2005RL000071

PATIENT
  Sex: Male

DRUGS (1)
  1. OMACOR [Suspect]
     Indication: MYOCARDIAL INFARCTION
     Dosage: QD; PO
     Route: 048
     Dates: start: 20050301, end: 20050615

REACTIONS (2)
  - CONDITION AGGRAVATED [None]
  - EXTRASYSTOLES [None]
